FAERS Safety Report 10101968 (Version 3)
Quarter: 2014Q2

REPORT INFORMATION
  Report Type: Spontaneous
  Country: US (occurrence: US)
  Receive Date: 20140424
  Receipt Date: 20140505
  Transmission Date: 20141212
  Serious: Yes (Other)
  Sender: FDA-Public Use
  Company Number: US-DRREDDYS-USA/USA/14/0039522

PATIENT
  Sex: Female

DRUGS (1)
  1. METOPROLOL SUCCINATE ER TABLETS 25 MG + 50 MG [Suspect]
     Indication: PRODUCT USED FOR UNKNOWN INDICATION
     Route: 065
     Dates: start: 20140214

REACTIONS (1)
  - Cardiac flutter [Recovered/Resolved]
